FAERS Safety Report 6448742-0 (Version None)
Quarter: 2009Q4

REPORT INFORMATION
  Report Type: 
  Country: None (occurrence: None)
  Receive Date: 20091120
  Receipt Date: 20090928
  Transmission Date: 20100525
  Serious: No
  Sender: FDA-Public Use
  Company Number: US-KINGPHARMUSA00001-K200901192

PATIENT
  Sex: Female

DRUGS (1)
  1. FLECTOR [Suspect]
     Indication: JOINT INJURY
     Dosage: UNK PATCH, UNK
     Route: 061
     Dates: start: 20090101

REACTIONS (3)
  - ANXIETY [None]
  - DEPRESSION [None]
  - HEART RATE INCREASED [None]
